FAERS Safety Report 26019100 (Version 1)
Quarter: 2025Q4

REPORT INFORMATION
  Report Type: Spontaneous
  Country: US (occurrence: US)
  Receive Date: 20251110
  Receipt Date: 20251110
  Transmission Date: 20260117
  Serious: Yes (Hospitalization)
  Sender: ABBVIE
  Company Number: US-ABBVIE-6538796

PATIENT

DRUGS (1)
  1. RINVOQ [Suspect]
     Active Substance: UPADACITINIB
     Indication: Product used for unknown indication
     Route: 048
     Dates: start: 202508

REACTIONS (5)
  - Pneumonia [Unknown]
  - Feeling abnormal [Unknown]
  - Feeding disorder [Unknown]
  - Fluid intake reduced [Unknown]
  - Screaming [Unknown]

NARRATIVE: CASE EVENT DATE: 20250101
